FAERS Safety Report 24900296 (Version 1)
Quarter: 2025Q1

REPORT INFORMATION
  Report Type: Spontaneous
  Country: FR (occurrence: FR)
  Receive Date: 20250129
  Receipt Date: 20250129
  Transmission Date: 20250408
  Serious: Yes (Other)
  Sender: MYLAN
  Company Number: None

PATIENT
  Age: 43 Year
  Sex: Male
  Weight: 72 kg

DRUGS (1)
  1. ZOLOFT [Suspect]
     Active Substance: SERTRALINE HYDROCHLORIDE
     Indication: Obsessive-compulsive disorder
     Dosage: 50 MILLIGRAM, QD
     Route: 048
     Dates: start: 20241223

REACTIONS (1)
  - Spontaneous ejaculation [Not Recovered/Not Resolved]

NARRATIVE: CASE EVENT DATE: 20250101
